FAERS Safety Report 7245867-7 (Version None)
Quarter: 2011Q1

REPORT INFORMATION
  Report Type: 
  Country: None (occurrence: None)
  Receive Date: 20110126
  Receipt Date: 20110113
  Transmission Date: 20110831
  Serious: Yes (Other)
  Sender: FDA-Public Use
  Company Number: US-ELI_LILLY_AND_COMPANY-US201101003528

PATIENT
  Sex: Female

DRUGS (8)
  1. CYMBALTA [Suspect]
     Dosage: 60 MG, DAILY (1/D)
  2. METHADONE [Concomitant]
  3. LEVOTHYROXINE SODIUM [Concomitant]
  4. AMBIEN [Concomitant]
     Dosage: UNK, AS NEEDED
  5. CYMBALTA [Suspect]
     Dosage: 90 MG, DAILY (1/D)
  6. DOXYCYCLA [Concomitant]
  7. METOPROLOL [Concomitant]
  8. DONEPEZIL HCL [Concomitant]

REACTIONS (5)
  - VOCAL CORD DISORDER [None]
  - NECK INJURY [None]
  - WRONG TECHNIQUE IN DRUG USAGE PROCESS [None]
  - DYSPHAGIA [None]
  - GASTROINTESTINAL TUBE INSERTION [None]
